FAERS Safety Report 7296551-5 (Version None)
Quarter: 2011Q1

REPORT INFORMATION
  Report Type: 
  Country: None (occurrence: None)
  Receive Date: 20110216
  Receipt Date: 20101119
  Transmission Date: 20110831
  Serious: Yes (Death)
  Sender: FDA-Public Use
  Company Number: GB-BRACCO-000306

PATIENT
  Sex: Male

DRUGS (2)
  1. NIOPAM [Suspect]
     Indication: COMPUTERISED TOMOGRAM
     Dosage: DRUG ADMINISTERED AT 15:24
     Dates: start: 20101012, end: 20101012
  2. NIOPAM [Suspect]
     Indication: SUBDIAPHRAGMATIC ABSCESS
     Dosage: DRUG ADMINISTERED AT 15:24
     Dates: start: 20101012, end: 20101012

REACTIONS (1)
  - ANAPHYLACTIC REACTION [None]
